FAERS Safety Report 10254736 (Version 1)
Quarter: 2014Q2

REPORT INFORMATION
  Report Type: Spontaneous
  Country: US (occurrence: US)
  Receive Date: 20140624
  Receipt Date: 20140624
  Transmission Date: 20141212
  Serious: No
  Sender: FDA-Public Use
  Company Number: US-BAYER-2014-094388

PATIENT
  Age: 47 Year
  Sex: Female

DRUGS (2)
  1. MAGNEVIST [Suspect]
     Indication: NUCLEAR MAGNETIC RESONANCE IMAGING
     Dosage: UNK UNK, ONCE
     Dates: start: 20140620, end: 20140620
  2. MAGNEVIST [Suspect]
     Indication: BREAST DISORDER

REACTIONS (1)
  - Urticaria [None]
